FAERS Safety Report 11626856 (Version 1)
Quarter: 2015Q4

REPORT INFORMATION
  Report Type: Spontaneous
  Country: PL (occurrence: PL)
  Receive Date: 20151013
  Receipt Date: 20151013
  Transmission Date: 20160304
  Serious: Yes (Other)
  Sender: FDA-Public Use
  Company Number: PL-UCBSA-2015008729

PATIENT
  Age: 28 Year
  Sex: Female

DRUGS (15)
  1. CARBAMAZEPINE. [Concomitant]
     Active Substance: CARBAMAZEPINE
     Dosage: 900 MG/DAY
  2. LEVETIRACETAM. [Concomitant]
     Active Substance: LEVETIRACETAM
     Dosage: 3000MG/DAY
  3. VIGABATRIN [Concomitant]
     Active Substance: VIGABATRIN
     Indication: SEIZURE
     Dosage: UNKNOWN DOSE
  4. TOPIRAMATE. [Concomitant]
     Active Substance: TOPIRAMATE
     Indication: SEIZURE
     Dosage: UNKNOWN DOSE
  5. VIMPAT [Suspect]
     Active Substance: LACOSAMIDE
     Dosage: 150 MG, 2X/DAY (BID)
     Route: 048
     Dates: start: 20140630, end: 201503
  6. NEUROTOP [Concomitant]
     Active Substance: CARBAMAZEPINE
     Dosage: 300 MG, ONCE DAILY (QD)
     Route: 048
     Dates: start: 20141119
  7. VIMPAT [Suspect]
     Active Substance: LACOSAMIDE
     Indication: SEIZURE
     Dosage: 200 MG/DAY
  8. VIMPAT [Suspect]
     Active Substance: LACOSAMIDE
     Dosage: INCREASED UP TO 300 MG
  9. CARBAMAZEPINE. [Concomitant]
     Active Substance: CARBAMAZEPINE
     Indication: SEIZURE
     Dosage: UNKNOWN DOSE
  10. TIAGABINE [Concomitant]
     Active Substance: TIAGABINE
     Indication: SEIZURE
     Dosage: UNKNOWN DOSE
  11. NEUROTOP [Concomitant]
     Active Substance: CARBAMAZEPINE
     Indication: PRODUCT USED FOR UNKNOWN INDICATION
     Dosage: 600 MG, ONCE DAILY (QD)
     Route: 048
  12. VIMPAT [Suspect]
     Active Substance: LACOSAMIDE
     Dosage: 300 MG/DAY
  13. LEVETIRACETAM. [Concomitant]
     Active Substance: LEVETIRACETAM
     Dosage: UNK
  14. LEVETIRACETAM. [Concomitant]
     Active Substance: LEVETIRACETAM
     Indication: SEIZURE
     Dosage: UNKNOWN DOSE
  15. LEVETIRACETAM. [Concomitant]
     Active Substance: LEVETIRACETAM
     Dosage: 1500 MG
     Route: 048
     Dates: start: 2010

REACTIONS (4)
  - Drug ineffective [Unknown]
  - Premature delivery [Unknown]
  - Pregnancy [Unknown]
  - Seizure [Recovering/Resolving]

NARRATIVE: CASE EVENT DATE: 201412
